FAERS Safety Report 21512931 (Version 1)
Quarter: 2022Q4

REPORT INFORMATION
  Report Type: Spontaneous
  Country: AU (occurrence: AU)
  Receive Date: 20221027
  Receipt Date: 20221027
  Transmission Date: 20230113
  Serious: Yes (Hospitalization, Other)
  Sender: FDA-Public Use
  Company Number: AU-ALKEM LABORATORIES LIMITED-AU-ALKEM-2022-11303

PATIENT
  Age: 43 Year
  Sex: Female

DRUGS (2)
  1. LEVETIRACETAM [Suspect]
     Active Substance: LEVETIRACETAM
     Indication: Epilepsy
     Dosage: (60-80 G) 1000 MILLIGRAM TABLETS, (KEPPRA, IMMEDIATE RELEASE PREPARATION)
     Route: 048
  2. ACETAMINOPHEN\CODEINE PHOSPHATE [Suspect]
     Active Substance: ACETAMINOPHEN\CODEINE PHOSPHATE
     Indication: Product used for unknown indication
     Dosage: 500 MG/30 MG, (20 TABLETS)
     Route: 048

REACTIONS (4)
  - Sinus bradycardia [Unknown]
  - Hypotension [Unknown]
  - Hypoglycaemia [Unknown]
  - Overdose [Unknown]
